FAERS Safety Report 8759566 (Version 2)
Quarter: 2012Q4

REPORT INFORMATION
  Report Type: 
  Country: US (occurrence: US)
  Receive Date: 20120829
  Receipt Date: 20120921
  Transmission Date: 20130627
  Serious: Yes (Hospitalization)
  Sender: FDA-Public Use
  Company Number: PHEH2012US016435

PATIENT
  Sex: Female

DRUGS (10)
  1. METOPROLOL [Suspect]
     Dosage: 50 mg, UNK
  2. METOPROLOL [Suspect]
     Dosage: 0.5 DF, UNK
  3. DIOVAN [Concomitant]
  4. SPIRONOLACTONE [Concomitant]
     Dosage: 25 mg, QD
  5. LASIX [Concomitant]
     Dosage: 40 mg, TID
  6. LIPITOR [Concomitant]
     Dosage: 40 mg, UNK
  7. PRILOSEC [Concomitant]
     Dosage: 20 mg, UNK
  8. IMDUR [Concomitant]
     Dosage: 60 mg, BID
  9. POTASSIUM [Concomitant]
     Dosage: 10 MEq, UNK
  10. LOPRESSOR [Concomitant]
     Dosage: 50 mg, UNK

REACTIONS (2)
  - Atrial fibrillation [Unknown]
  - Wrong technique in drug usage process [Unknown]
